FAERS Safety Report 11518361 (Version 1)
Quarter: 2015Q3

REPORT INFORMATION
  Report Type: Spontaneous
  Country: US (occurrence: US)
  Receive Date: 20150917
  Receipt Date: 20150917
  Transmission Date: 20151125
  Serious: Yes (Hospitalization)
  Sender: FDA-Public Use
  Company Number: US-US WORLDMEDS, LLC-USW201509-000249

PATIENT
  Age: 47 Year
  Sex: Male

DRUGS (1)
  1. DANTROLENE [Suspect]
     Active Substance: DANTROLENE

REACTIONS (4)
  - Pneumonia [Unknown]
  - Respiratory failure [Recovered/Resolved]
  - Pneumothorax [Unknown]
  - Forced vital capacity decreased [Unknown]
